FAERS Safety Report 25367789 (Version 1)
Quarter: 2025Q2

REPORT INFORMATION
  Report Type: Spontaneous
  Country: DE (occurrence: DE)
  Receive Date: 20250528
  Receipt Date: 20250528
  Transmission Date: 20250717
  Serious: Yes (Other)
  Sender: TEVA
  Company Number: DE-SANDOZ-SDZ2025DE025158

PATIENT
  Sex: Female

DRUGS (18)
  1. AMLODIPINE [Suspect]
     Active Substance: AMLODIPINE BESYLATE
     Indication: Product used for unknown indication
     Dosage: 5 MG, QD, MORNING, (BEFORE CAR-T CELL THERAPY)
     Route: 065
     Dates: start: 202401
  2. CANDESARTAN [Suspect]
     Active Substance: CANDESARTAN
     Indication: Product used for unknown indication
     Dosage: 16 MG, BID, MORNING + EVENING, (BEFORE CAR-T CELL THERAPY)
     Route: 065
     Dates: start: 202401
  3. FERRO-SANOL DUODENAL [Suspect]
     Active Substance: FERROUS GLYCINE SULFATE
     Indication: Product used for unknown indication
     Dosage: 100 MG, QD, MORNING (AFTER CAR T-CELL THERAPY)
     Route: 065
     Dates: start: 202409
  4. BENLYSTA [Suspect]
     Active Substance: BELIMUMAB
     Indication: Product used for unknown indication
     Route: 065
     Dates: start: 202201
  5. CYCLOSPORINE [Suspect]
     Active Substance: CYCLOSPORINE
     Indication: Product used for unknown indication
     Dosage: 50 MG, BID, MORNING + EVENING, (BEFORE CAR-T CELL THERAPY)
     Route: 065
     Dates: start: 202401
  6. CYCLOSPORINE [Suspect]
     Active Substance: CYCLOSPORINE
     Indication: Product used for unknown indication
     Route: 065
     Dates: start: 202201
  7. DAPAGLIFLOZIN [Suspect]
     Active Substance: DAPAGLIFLOZIN
     Indication: Product used for unknown indication
     Dosage: 10 MG, QD, MORNING, (BEFORE CAR-T CELL THERAPY)
     Route: 065
     Dates: start: 202401
  8. DAPAGLIFLOZIN [Suspect]
     Active Substance: DAPAGLIFLOZIN
     Indication: Product used for unknown indication
     Dosage: 10 MG, QD, MORNING, (AFTER CAR T-CELL THERAPY)
     Route: 065
     Dates: start: 202409
  9. BELIMUMAB [Suspect]
     Active Substance: BELIMUMAB
     Indication: Product used for unknown indication
     Dosage: 200 MG, QW, (BEFORE CAR-T CELL THERAPY)
     Route: 065
     Dates: start: 202401
  10. PREDNISOLONE [Suspect]
     Active Substance: PREDNISOLONE
     Indication: Pain
     Dosage: 5 MG, QD, MORNING (BEFORE CAR-T CELL THERAPY)
     Route: 065
     Dates: start: 202401
  11. PREDNISOLONE [Suspect]
     Active Substance: PREDNISOLONE
     Indication: Pain
     Route: 065
     Dates: start: 202112, end: 202201
  12. PREDNISOLONE [Suspect]
     Active Substance: PREDNISOLONE
     Indication: Pain
     Dosage: 17.5 MG, QD
     Route: 065
     Dates: start: 2019
  13. FOLIC ACID [Suspect]
     Active Substance: FOLIC ACID
     Indication: Product used for unknown indication
     Dosage: 5 MG, QD, MORNING, (AFTER CAR-T CELL THERAPY)
     Route: 065
     Dates: start: 202409
  14. MYCOPHENOLATE MOFETIL [Concomitant]
     Active Substance: MYCOPHENOLATE MOFETIL
     Indication: Product used for unknown indication
     Route: 065
     Dates: start: 202203, end: 202206
  15. PANTOPRAZOLE [Suspect]
     Active Substance: PANTOPRAZOLE
     Indication: Product used for unknown indication
     Dosage: 20 MG, QD, MORNING (BEFORE CAR-T CELL THERAPY)
     Route: 065
     Dates: start: 202401
  16. PANTOPRAZOLE [Suspect]
     Active Substance: PANTOPRAZOLE
     Indication: Product used for unknown indication
     Dosage: 40 MG, QD, MORNING (AFTER CAR-T CELL THERAPY)
     Route: 065
     Dates: start: 202409
  17. CHOLECALCIFEROL [Suspect]
     Active Substance: CHOLECALCIFEROL
     Indication: Product used for unknown indication
     Dosage: 20 MG, QW, MORNING, OILY SOLUTION, BEFORE CAR-T CELL THERAPY
     Route: 065
     Dates: start: 202401
  18. CHOLECALCIFEROL [Suspect]
     Active Substance: CHOLECALCIFEROL
     Indication: Product used for unknown indication
     Dosage: 20000 IU, QD, MORNING (AFTER CAR T-CELL THERAPY)
     Route: 065
     Dates: start: 202409

REACTIONS (9)
  - Systemic lupus erythematosus [Unknown]
  - Alopecia [Unknown]
  - Vasculitis [Unknown]
  - Neutropenia [Recovered/Resolved]
  - Nausea [Unknown]
  - Nephrotic syndrome [Unknown]
  - Pain [Unknown]
  - Lupus nephritis [Unknown]
  - Raynaud^s phenomenon [Unknown]

NARRATIVE: CASE EVENT DATE: 20210101
